FAERS Safety Report 6339953-3 (Version None)
Quarter: 2009Q3

REPORT INFORMATION
  Report Type: 
  Country: None (occurrence: None)
  Receive Date: 20090903
  Receipt Date: 20090827
  Transmission Date: 20100115
  Serious: Yes (Life-Threatening, Hospitalization, Other)
  Sender: FDA-Public Use
  Company Number: US-ABBOTT-07P-163-0362607-00

PATIENT
  Sex: Male
  Weight: 91 kg

DRUGS (14)
  1. HUMIRA [Suspect]
     Indication: PSORIASIS
     Route: 058
     Dates: start: 20050413, end: 20071128
  2. HUMIRA [Suspect]
     Dates: start: 20070123
  3. CENTRUM SILVER MULTIVITAMIN [Concomitant]
     Indication: MEDICAL DIET
     Dates: start: 20040430
  4. CARBONYL IRON SUPPLEMENT [Concomitant]
     Indication: MEDICAL DIET
     Dates: start: 20050710
  5. OXICONAZOLE [Concomitant]
     Indication: ONYCHOMYCOSIS
     Dates: start: 20051101
  6. AMOXICILLIN [Concomitant]
     Indication: TOOTH ABSCESS
     Dates: start: 20060325
  7. TICLOPIDINE HCL [Concomitant]
     Indication: HYPERTENSION
     Dates: start: 20050430
  8. ATORVASTATIN [Concomitant]
     Indication: HYPERCHOLESTEROLAEMIA
     Dates: start: 20040430
  9. B COMPLEX ELX [Concomitant]
     Indication: MEDICAL DIET
     Dates: start: 20040430
  10. IRBESARTAN [Concomitant]
     Indication: HYPERTENSION
     Dates: start: 20040430
  11. ASPIRIN [Concomitant]
     Indication: CARDIOVASCULAR EVENT PROPHYLAXIS
     Dates: start: 19840101
  12. HYDROCODONE [Concomitant]
     Indication: JOINT DISLOCATION
     Dates: start: 20061124
  13. AMBIEN [Concomitant]
     Indication: JOINT DISLOCATION
     Dates: start: 20061211
  14. ERTACZO CREAM [Concomitant]
     Indication: DRUG USE FOR UNKNOWN INDICATION

REACTIONS (6)
  - ANAEMIA POSTOPERATIVE [None]
  - AORTIC STENOSIS [None]
  - CARDIAC TAMPONADE [None]
  - MITRAL VALVE INCOMPETENCE [None]
  - POST PROCEDURAL HAEMORRHAGE [None]
  - THROMBOCYTOPENIA [None]
